FAERS Safety Report 7099840-2 (Version None)
Quarter: 2010Q4

REPORT INFORMATION
  Report Type: 
  Country: None (occurrence: None)
  Receive Date: 20101112
  Receipt Date: 20101103
  Transmission Date: 20110411
  Serious: Yes (Other)
  Sender: FDA-Public Use
  Company Number: US-JNJFOC-20101102835

PATIENT
  Sex: Female

DRUGS (6)
  1. MOTRIN IB [Suspect]
     Indication: ARTHRALGIA
     Route: 048
  2. MOTRIN IB [Suspect]
     Route: 048
  3. ZOLOFT [Concomitant]
     Route: 065
  4. ATENOLOL [Concomitant]
     Route: 065
  5. MORPHINE [Concomitant]
     Indication: INTERVERTEBRAL DISC DEGENERATION
     Route: 065
  6. REQUIP [Concomitant]
     Route: 065

REACTIONS (2)
  - HYPERTENSION [None]
  - INTENTIONAL DRUG MISUSE [None]
